FAERS Safety Report 7127979-1 (Version None)
Quarter: 2010Q4

REPORT INFORMATION
  Report Type: 
  Country: None (occurrence: None)
  Receive Date: 20101112
  Receipt Date: 20101101
  Transmission Date: 20110411
  Serious: Yes (Hospitalization)
  Sender: FDA-Public Use
  Company Number: 021441

PATIENT
  Sex: Female

DRUGS (2)
  1. LORTAB [Suspect]
     Indication: FLANK PAIN
     Dates: start: 20050101, end: 20050101
  2. INSULIN GLARGINE [Suspect]
     Indication: TYPE 2 DIABETES MELLITUS
     Dates: start: 20020101

REACTIONS (7)
  - CATARACT [None]
  - DRUG HYPERSENSITIVITY [None]
  - EYE HAEMORRHAGE [None]
  - FLANK PAIN [None]
  - HAEMATEMESIS [None]
  - LENTICULAR OPACITIES [None]
  - OCULAR VASCULAR DISORDER [None]
